FAERS Safety Report 10930269 (Version 1)
Quarter: 2015Q1

REPORT INFORMATION
  Report Type: Spontaneous
  Country: US (occurrence: None)
  Receive Date: 20150318
  Receipt Date: 20150318
  Transmission Date: 20150721
  Serious: Yes (Other)
  Sender: FDA-Public Use
  Company Number: None

PATIENT
  Age: 32 Year
  Sex: Female

DRUGS (1)
  1. ENBREL [Suspect]
     Active Substance: ETANERCEPT
     Indication: RHEUMATOID ARTHRITIS
     Dosage: 50 INJECTABLE
     Route: 058
     Dates: start: 201410

REACTIONS (4)
  - Injection site rash [None]
  - Hangover [None]
  - Fatigue [None]
  - Injection site pruritus [None]

NARRATIVE: CASE EVENT DATE: 20150317
